FAERS Safety Report 7334671-7 (Version None)
Quarter: 2011Q1

REPORT INFORMATION
  Report Type: 
  Country: None (occurrence: None)
  Receive Date: 20110222
  Receipt Date: 20110214
  Transmission Date: 20110831
  Serious: Yes (Hospitalization)
  Sender: FDA-Public Use
  Company Number: WAES 0907USA04899

PATIENT
  Age: 55 Year
  Sex: Male

DRUGS (11)
  1. ZERIT [Suspect]
     Indication: HIV INFECTION
     Dosage: 80, 60 MG/DAILY, PO
     Route: 048
     Dates: start: 20030916, end: 20060228
  2. ZERIT [Suspect]
     Indication: HIV INFECTION
     Dosage: 80, 60 MG/DAILY, PO
     Route: 048
     Dates: start: 20081216, end: 20090210
  3. PREZISTA [Suspect]
     Indication: HIV INFECTION
     Dosage: 1200 MG/DAILY, PO
     Route: 048
     Dates: start: 20090109
  4. KALETRA [Suspect]
     Indication: HIV INFECTION
     Dosage: 4 TAB, DAILY, PO
     Route: 048
     Dates: start: 20070704, end: 20080108
  5. ISENTRESS [Suspect]
     Indication: HIV INFECTION
     Dosage: 800 MG, DAILY, PO
     Route: 048
     Dates: start: 20080805
  6. EPIVIR [Suspect]
     Indication: HIV INFECTION
     Dosage: 150 MG, BID, PO
     Route: 048
     Dates: start: 20030916, end: 20060228
  7. EPIVIR [Suspect]
     Indication: HIV INFECTION
     Dosage: 150 MG, BID, PO
     Route: 048
     Dates: start: 20081216
  8. INTELENCE [Suspect]
     Indication: HIV INFECTION
     Dosage: 200 MG/BID, PO
     Route: 048
     Dates: start: 20090211
  9. TRUVADA [Suspect]
     Indication: HIV INFECTION
     Dosage: 1 TAB/DAILY,1 DOSE /DAILY, PO
     Route: 048
     Dates: start: 20080805, end: 20081215
  10. TRUVADA [Suspect]
     Indication: HIV INFECTION
     Dosage: 1 TAB/DAILY,1 DOSE /DAILY, PO
     Route: 048
     Dates: start: 20070704, end: 20080501
  11. RYTHMY [Concomitant]

REACTIONS (2)
  - DIABETES MELLITUS [None]
  - HYPERTRIGLYCERIDAEMIA [None]
